FAERS Safety Report 8334052-3 (Version None)
Quarter: 2012Q2

REPORT INFORMATION
  Report Type: 
  Country: None (occurrence: None)
  Receive Date: 20120503
  Receipt Date: 20120423
  Transmission Date: 20120825
  Serious: Yes (Other)
  Sender: FDA-Public Use
  Company Number: AU-ROCHE-1035860

PATIENT
  Sex: Female

DRUGS (3)
  1. RIBAVIRIN [Suspect]
     Indication: HEPATITIS C
     Route: 048
  2. RIBAVIRIN [Suspect]
  3. PEGASYS [Suspect]
     Indication: HEPATITIS C
     Route: 058
     Dates: start: 20120116

REACTIONS (10)
  - POOR QUALITY SLEEP [None]
  - HAEMATURIA [None]
  - LETHARGY [None]
  - IRRITABILITY [None]
  - AGITATION [None]
  - NEPHROLITHIASIS [None]
  - NEPHRITIS [None]
  - DYSURIA [None]
  - URETERIC OBSTRUCTION [None]
  - FLANK PAIN [None]
